FAERS Safety Report 11031445 (Version 3)
Quarter: 2015Q3

REPORT INFORMATION
  Report Type: Spontaneous
  Country: BR (occurrence: BR)
  Receive Date: 20150415
  Receipt Date: 20150722
  Transmission Date: 20151125
  Serious: Yes (Other)
  Sender: FDA-Public Use
  Company Number: BR-ASTRAZENECA-2015SE32897

PATIENT
  Age: 39 Year
  Sex: Female
  Weight: 63 kg

DRUGS (10)
  1. CAPRELSA [Suspect]
     Active Substance: VANDETANIB
     Indication: METASTASIS
     Route: 048
     Dates: start: 201407, end: 2014
  2. LOSARTAN. [Concomitant]
     Active Substance: LOSARTAN
     Indication: BLOOD PRESSURE INCREASED
     Route: 048
     Dates: start: 2014
  3. ESOP [Suspect]
     Active Substance: ESOMEPRAZOLE
     Indication: ABDOMINAL PAIN UPPER
     Route: 048
     Dates: start: 2014
  4. VALDOXAN [Concomitant]
     Active Substance: AGOMELATINE
     Indication: INSOMNIA
     Route: 048
     Dates: start: 2014
  5. CAPRELSA [Suspect]
     Active Substance: VANDETANIB
     Indication: METASTASIS
     Route: 048
     Dates: start: 2014, end: 2014
  6. FELDENE [Concomitant]
     Active Substance: PIROXICAM
     Indication: ARTHRALGIA
     Route: 060
     Dates: start: 2014
  7. VONAU [Concomitant]
     Active Substance: ONDANSETRON HYDROCHLORIDE
     Indication: ABDOMINAL PAIN UPPER
     Route: 048
     Dates: start: 2014
  8. IMOSEC [Concomitant]
     Active Substance: LOPERAMIDE
     Indication: DIARRHOEA
     Route: 048
     Dates: start: 2014
  9. CAPRELSA [Suspect]
     Active Substance: VANDETANIB
     Indication: METASTASIS
     Route: 048
     Dates: start: 2014
  10. CEFALIUM [Concomitant]
     Indication: MIGRAINE
     Dosage: DAILY
     Route: 048
     Dates: start: 201503

REACTIONS (10)
  - Osteonecrosis [Unknown]
  - Diarrhoea [Not Recovered/Not Resolved]
  - Off label use [Recovered/Resolved]
  - Arthralgia [Recovering/Resolving]
  - Insomnia [Not Recovered/Not Resolved]
  - Blood pressure systolic increased [Recovered/Resolved]
  - Joint swelling [Recovering/Resolving]
  - Migraine [Not Recovered/Not Resolved]
  - Abdominal pain upper [Not Recovered/Not Resolved]
  - Nausea [Recovering/Resolving]

NARRATIVE: CASE EVENT DATE: 2014
